FAERS Safety Report 21797137 (Version 1)
Quarter: 2022Q4

REPORT INFORMATION
  Report Type: Spontaneous
  Country: IN (occurrence: IN)
  Receive Date: 20221230
  Receipt Date: 20221230
  Transmission Date: 20230113
  Serious: Yes (Death, Hospitalization)
  Sender: FDA-Public Use
  Company Number: IN-STRIDES ARCOLAB LIMITED-2022SP017592

PATIENT
  Age: 7 Year
  Sex: Female

DRUGS (3)
  1. ACYCLOVIR [Suspect]
     Active Substance: ACYCLOVIR
     Indication: Varicella zoster pneumonia
     Dosage: UNK
     Route: 065
  2. CEFTRIAXONE [Suspect]
     Active Substance: CEFTRIAXONE
     Indication: Varicella zoster pneumonia
     Dosage: UNK
     Route: 065
  3. CLOXACILLIN [Suspect]
     Active Substance: CLOXACILLIN
     Indication: Varicella zoster pneumonia
     Dosage: UNK
     Route: 065

REACTIONS (1)
  - Drug ineffective [Fatal]
